FAERS Safety Report 9307617 (Version 1)
Quarter: 2013Q2

REPORT INFORMATION
  Report Type: Spontaneous
  Country: US (occurrence: US)
  Receive Date: 20130524
  Receipt Date: 20130524
  Transmission Date: 20140414
  Serious: No
  Sender: FDA-Public Use
  Company Number: US-PFIZER INC-2013158706

PATIENT
  Sex: 0

DRUGS (2)
  1. PRISTIQ [Suspect]
     Indication: DEPRESSION
     Dosage: 50 MG, UNK
  2. PRISTIQ [Suspect]
     Indication: BIPOLAR DISORDER

REACTIONS (4)
  - Tablet physical issue [Unknown]
  - Constipation [Unknown]
  - Gastrointestinal disorder [Unknown]
  - Off label use [Unknown]
